FAERS Safety Report 14335062 (Version 1)
Quarter: 2017Q4

REPORT INFORMATION
  Report Type: Report from Study
  Country: None (occurrence: BR)
  Receive Date: 20171229
  Receipt Date: 20171229
  Transmission Date: 20180321
  Serious: Yes (Other)
  Sender: FDA-Public Use
  Company Number: BR-ABBVIE-17K-020-2206606-00

PATIENT
  Age: 37 Year
  Sex: Female
  Weight: 94 kg

DRUGS (1)
  1. HUMIRA [Suspect]
     Active Substance: ADALIMUMAB
     Indication: ANKYLOSING SPONDYLITIS
     Route: 058
     Dates: start: 20160901, end: 20171028

REACTIONS (5)
  - Abdominal pain [Not Recovered/Not Resolved]
  - Lymphadenopathy [Recovered/Resolved]
  - Tumour inflammation [Recovered/Resolved]
  - Lymphadenopathy [Recovered/Resolved]
  - Leiomyoma [Not Recovered/Not Resolved]

NARRATIVE: CASE EVENT DATE: 201706
